FAERS Safety Report 7028489-2 (Version None)
Quarter: 2010Q4

REPORT INFORMATION
  Report Type: 
  Country: None (occurrence: None)
  Receive Date: 20101005
  Receipt Date: 20100923
  Transmission Date: 20110411
  Serious: Yes (Other)
  Sender: FDA-Public Use
  Company Number: US-PFIZER INC-2010121344

PATIENT
  Sex: Female
  Weight: 58.957 kg

DRUGS (11)
  1. LYRICA [Suspect]
     Indication: DIABETIC NEUROPATHY
     Dosage: 75 MG, 2X/DAY
     Route: 048
     Dates: start: 20100922
  2. HUMALOG [Suspect]
     Indication: DIABETES MELLITUS
     Dosage: UNK
     Route: 058
  3. LEVEMIR [Concomitant]
     Indication: DIABETES MELLITUS
     Dosage: UNK IU 2X DAY
     Route: 058
     Dates: start: 20051101
  4. NOVOLOG [Concomitant]
     Indication: DIABETES MELLITUS
     Dosage: UNK IU, 1X DAY
     Route: 058
  5. LOTREL [Concomitant]
     Indication: HYPERTENSION
     Dosage: 5/40 MG DAILY
     Dates: start: 20100801
  6. VITAMIN B-12 [Concomitant]
     Indication: PERNICIOUS ANAEMIA
     Dosage: UNK MONTHLY INJECTION
     Dates: start: 20040101
  7. CARBAMAZEPINE [Concomitant]
     Indication: PARTIAL SEIZURES
     Dosage: 100 MG, 5X/DAY
     Dates: start: 19920101
  8. CLARITIN [Concomitant]
     Indication: HYPERSENSITIVITY
     Dosage: 10 MG, 1X/DAY
     Route: 048
     Dates: start: 19920101
  9. HYDROCODONE [Concomitant]
     Indication: PAIN
     Dosage: 10/325 MG
     Dates: start: 20100923
  10. LEVOTHYROXINE [Concomitant]
     Indication: HYPOTHYROIDISM
     Dosage: 137 UG, 1X/DAY
     Route: 048
     Dates: start: 20100909
  11. CIPROFLOXACIN [Concomitant]
     Indication: CYSTITIS
     Dosage: UNK
     Dates: start: 20100921

REACTIONS (6)
  - BLOOD GLUCOSE DECREASED [None]
  - CONVULSION [None]
  - DECREASED ACTIVITY [None]
  - DRUG HYPERSENSITIVITY [None]
  - DYSPNOEA [None]
  - SEDATION [None]
